FAERS Safety Report 5108664-4 (Version None)
Quarter: 2006Q3

REPORT INFORMATION
  Report Type: 
  Country: None (occurrence: None)
  Receive Date: 20060915
  Receipt Date: 20060904
  Transmission Date: 20061208
  Serious: Yes (Hospitalization)
  Sender: FDA-Public Use
  Company Number: GXKR2006ES05434

PATIENT
  Age: 79 Year
  Sex: Male

DRUGS (2)
  1. ASPIRIN [Suspect]
     Indication: ANGINA PECTORIS
     Dosage: 300 MG, QD,
  2. CLOPIDOGREL [Suspect]
     Indication: ANGINA PECTORIS
     Dosage: 75 MG, QD

REACTIONS (6)
  - CARDIAC FAILURE [None]
  - HAEMOTHORAX [None]
  - PLEURAL EFFUSION [None]
  - PLEURAL FIBROSIS [None]
  - RED BLOOD CELL COUNT DECREASED [None]
  - THERAPY NON-RESPONDER [None]
